FAERS Safety Report 8912222 (Version 1)
Quarter: 2012Q4

REPORT INFORMATION
  Report Type: 
  Country: GB (occurrence: GB)
  Receive Date: 20121116
  Receipt Date: 20121116
  Transmission Date: 20130627
  Serious: Yes (Death, Hospitalization, Other)
  Sender: FDA-Public Use
  Company Number: GB-MERCK-1211GBR003805

PATIENT

DRUGS (2)
  1. SIMVASTATIN [Suspect]
     Dosage: 40 mg, UNK
     Route: 048
  2. FUCIDIN [Interacting]
     Dosage: UNK

REACTIONS (2)
  - Rhabdomyolysis [Fatal]
  - Labelled drug-drug interaction medication error [Fatal]
